FAERS Safety Report 7053412-4 (Version None)
Quarter: 2010Q4

REPORT INFORMATION
  Report Type: 
  Country: None (occurrence: None)
  Receive Date: 20101020
  Receipt Date: 20101015
  Transmission Date: 20110411
  Serious: Yes (Death)
  Sender: FDA-Public Use
  Company Number: PHHY2010CA68670

PATIENT
  Sex: Female
  Weight: 66 kg

DRUGS (10)
  1. EXELON [Suspect]
     Indication: DEMENTIA ALZHEIMER'S TYPE
     Dosage: UNK
     Route: 062
     Dates: start: 20090919
  2. DIOVAN [Concomitant]
     Dosage: 80 MG, DAILY
  3. LASIX [Concomitant]
     Dosage: 20 MG, DAILY
  4. PLAVIX [Concomitant]
     Dosage: 75 MG, DAILY
  5. ZOCOR [Concomitant]
     Dosage: 20 MG, DAILY
  6. LOPRESSOR [Concomitant]
     Dosage: 100 MG DAILY
  7. MONOPRIL [Concomitant]
     Dosage: 10 MG 1.5 TABLETS
  8. GLYSENNID [Concomitant]
     Dosage: 2 DF, QHS
  9. METAMUCIL-2 [Concomitant]
     Dosage: 2 DF, BID
  10. ATASOL [Concomitant]
     Dosage: 2 DF, TID, PRN

REACTIONS (1)
  - DEATH [None]
